FAERS Safety Report 4984953-9 (Version None)
Quarter: 2006Q2

REPORT INFORMATION
  Report Type: 
  Country: None (occurrence: None)
  Receive Date: 20060427
  Receipt Date: 20060412
  Transmission Date: 20061013
  Serious: Yes (Other)
  Sender: FDA-Public Use
  Company Number: FRWYE554813APR06

PATIENT
  Sex: Female

DRUGS (2)
  1. ENBREL [Suspect]
     Indication: ANKYLOSING SPONDYLITIS
     Route: 058
     Dates: start: 20040101
  2. ENBREL [Suspect]

REACTIONS (3)
  - BLOOD PRESSURE DECREASED [None]
  - FATIGUE [None]
  - HEART RATE DECREASED [None]
